APPROVED DRUG PRODUCT: ANTARA (MICRONIZED)
Active Ingredient: FENOFIBRATE
Strength: 87MG
Dosage Form/Route: CAPSULE;ORAL
Application: N021695 | Product #002
Applicant: LUPIN INC
Approved: Nov 30, 2004 | RLD: No | RS: No | Type: DISCN